FAERS Safety Report 11055606 (Version 1)
Quarter: 2015Q2

REPORT INFORMATION
  Report Type: Spontaneous
  Country: US (occurrence: None)
  Receive Date: 20150421
  Receipt Date: 20150421
  Transmission Date: 20150821
  Serious: No
  Sender: FDA-Public Use
  Company Number: None

PATIENT
  Age: 57 Year
  Sex: Male
  Weight: 88.45 kg

DRUGS (3)
  1. AMPHETAMINE SALTS [Suspect]
     Active Substance: AMPHETAMINE ASPARTATE\AMPHETAMINE SULFATE\DEXTROAMPHETAMINE SACCHARATE\DEXTROAMPHETAMINE SULFATE
     Indication: ASTHENIA
     Dosage: 3    THREE TIMES DAILY  TAKEN BY MOUTH
     Route: 048
     Dates: start: 20150416, end: 20150420
  2. CENTRUM VITAMINS LIQUID [Concomitant]
     Active Substance: VITAMINS
  3. AMPHETAMINE SALTS [Suspect]
     Active Substance: AMPHETAMINE ASPARTATE\AMPHETAMINE SULFATE\DEXTROAMPHETAMINE SACCHARATE\DEXTROAMPHETAMINE SULFATE
     Indication: ATTENTION DEFICIT/HYPERACTIVITY DISORDER
     Dosage: 3    THREE TIMES DAILY  TAKEN BY MOUTH
     Route: 048
     Dates: start: 20150416, end: 20150420

REACTIONS (4)
  - Product quality issue [None]
  - Product substitution issue [None]
  - Somnolence [None]
  - Headache [None]

NARRATIVE: CASE EVENT DATE: 20150416
